FAERS Safety Report 9892807 (Version 1)
Quarter: 2014Q1

REPORT INFORMATION
  Report Type: Report from Study
  Country: US (occurrence: US)
  Receive Date: 20140212
  Receipt Date: 20140212
  Transmission Date: 20141002
  Serious: Yes (Other)
  Sender: FDA-Public Use
  Company Number: US-ROCHE-1348136

PATIENT
  Age: 65 Year
  Sex: Female

DRUGS (7)
  1. LUCENTIS [Suspect]
     Indication: DIABETES MELLITUS
     Dosage: RIGHT EYE?MOST RECENT DOSE 10/FEB/2014.
     Route: 065
  2. GLIBENCLAMIDE [Concomitant]
     Indication: DIABETES MELLITUS
     Route: 065
  3. METFORMIN [Concomitant]
     Indication: DIABETES MELLITUS
     Dosage: TWICE IN ONE DAY
     Route: 048
  4. ACTOS [Concomitant]
     Indication: DIABETES MELLITUS
     Route: 065
  5. ZOLOFT [Concomitant]
  6. TEKTURNA [Concomitant]
     Indication: HYPERTENSION
  7. LIPITOR [Concomitant]
     Indication: BLOOD CHOLESTEROL INCREASED

REACTIONS (2)
  - Blindness [Not Recovered/Not Resolved]
  - Vision blurred [Not Recovered/Not Resolved]
